FAERS Safety Report 12158610 (Version 1)
Quarter: 2016Q1

REPORT INFORMATION
  Report Type: Spontaneous
  Country: US (occurrence: US)
  Receive Date: 20160308
  Receipt Date: 20160308
  Transmission Date: 20160526
  Serious: No
  Sender: FDA-Public Use
  Company Number: US-JNJFOC-20160221983

PATIENT
  Sex: Female

DRUGS (3)
  1. VISINE [Suspect]
     Active Substance: TETRAHYDROZOLINE HYDROCHLORIDE
     Indication: EYE IRRITATION
     Route: 065
  2. VISINE [Suspect]
     Active Substance: TETRAHYDROZOLINE HYDROCHLORIDE
     Indication: EYE PRURITUS
     Route: 065
  3. VISINE [Suspect]
     Active Substance: TETRAHYDROZOLINE HYDROCHLORIDE
     Indication: EYE DISORDER
     Route: 065

REACTIONS (3)
  - Product formulation issue [Unknown]
  - Product use issue [Unknown]
  - Off label use [Unknown]
